FAERS Safety Report 8093701-8 (Version None)
Quarter: 2012Q1

REPORT INFORMATION
  Report Type: 
  Country: None (occurrence: None)
  Receive Date: 20120129
  Receipt Date: 20111026
  Transmission Date: 20120608
  Serious: No
  Sender: FDA-Public Use
  Company Number: US-ABBOTT-11P-163-0868673-00

PATIENT
  Sex: Female

DRUGS (1)
  1. HUMIRA [Suspect]
     Indication: CROHN'S DISEASE
     Route: 058
     Dates: start: 20080101

REACTIONS (7)
  - CROHN'S DISEASE [None]
  - OEDEMA PERIPHERAL [None]
  - HEPATIC ENZYME INCREASED [None]
  - ABDOMINAL DISTENSION [None]
  - WEIGHT DECREASED [None]
  - FAECES DISCOLOURED [None]
  - JOINT SWELLING [None]
